FAERS Safety Report 9254190 (Version 2)
Quarter: 2013Q2

REPORT INFORMATION
  Report Type: Report from Study
  Country: BR (occurrence: BR)
  Receive Date: 20130425
  Receipt Date: 20130522
  Transmission Date: 20140414
  Serious: Yes (Life-Threatening, Other)
  Sender: FDA-Public Use
  Company Number: PHHY2013BR039827

PATIENT
  Age: 62 Year
  Sex: Female

DRUGS (3)
  1. FORASEQ [Suspect]
     Indication: ASTHMA
     Dosage: 1 DF, BID
  2. ONDASETRON [Concomitant]
     Indication: NAUSEA
     Dosage: 1 TABLET IN THE MORNING AND AT NIGHT
     Route: 048
     Dates: start: 201212, end: 201302
  3. ENALAPRIL [Concomitant]
     Indication: ANXIETY
     Dosage: 1 TABLET DAILY
     Route: 048
     Dates: start: 201212, end: 201302

REACTIONS (3)
  - Coma [Recovering/Resolving]
  - Lung neoplasm malignant [Recovering/Resolving]
  - Eating disorder [Recovering/Resolving]
